FAERS Safety Report 16752213 (Version 2)
Quarter: 2019Q3

REPORT INFORMATION
  Report Type: Spontaneous
  Country: JP (occurrence: JP)
  Receive Date: 20190828
  Receipt Date: 20190913
  Transmission Date: 20191005
  Serious: Yes (Hospitalization)
  Sender: FDA-Public Use
  Company Number: JP-GLAXOSMITHKLINE-JP2019JPN154948

PATIENT
  Sex: Male

DRUGS (1)
  1. VENTOLINE [Suspect]
     Active Substance: ALBUTEROL
     Indication: ASTHMA
     Dosage: 0.3 ML, 10-20TIMES PER DAY
     Route: 055

REACTIONS (3)
  - Asthma [Unknown]
  - Product use issue [Unknown]
  - Circumstance or information capable of leading to medication error [Unknown]
